FAERS Safety Report 5678810-2 (Version None)
Quarter: 2008Q1

REPORT INFORMATION
  Report Type: 
  Country: None (occurrence: None)
  Receive Date: 20080321
  Receipt Date: 20080314
  Transmission Date: 20080703
  Serious: Yes (Hospitalization)
  Sender: FDA-Public Use
  Company Number: 2008AP000692

PATIENT
  Age: 83 Year
  Sex: Male
  Weight: 61.6892 kg

DRUGS (8)
  1. MINOXIDIL [Suspect]
     Indication: ALOPECIA
     Dosage: 1 ML;QD;TOP
     Route: 061
     Dates: start: 20000301
  2. ESOMEPRAZOLE MAGNESIUM [Concomitant]
  3. CLOPIDOGREL [Concomitant]
  4. CALCIUM [Concomitant]
  5. GLYCEROPHOSPHATE [Concomitant]
  6. CASTOR OIL [Concomitant]
  7. PREDNISONE TAB [Concomitant]
  8. RIVASTIGMINE [Concomitant]

REACTIONS (7)
  - ALOPECIA [None]
  - DRUG INEFFECTIVE [None]
  - GASTRIC MUCOSAL LESION [None]
  - HAIR GROWTH ABNORMAL [None]
  - LOSS OF CONSCIOUSNESS [None]
  - MYOCARDIAL INFARCTION [None]
  - SKIN LESION [None]
